FAERS Safety Report 25494702 (Version 1)
Quarter: 2025Q2

REPORT INFORMATION
  Report Type: Spontaneous
  Country: DE (occurrence: DE)
  Receive Date: 20250630
  Receipt Date: 20250630
  Transmission Date: 20250716
  Serious: Yes (Hospitalization)
  Sender: NOVARTIS
  Company Number: DE-DCGMA-25205310

PATIENT
  Age: 12 Month
  Sex: Male
  Weight: 8.32 kg

DRUGS (2)
  1. CERTICAN [Suspect]
     Active Substance: EVEROLIMUS
     Indication: Rhabdomyoma
     Route: 048
     Dates: start: 20240201
  2. Zymafluor d [Concomitant]
     Indication: Product used for unknown indication
     Route: 048
     Dates: start: 20250220

REACTIONS (3)
  - Mucosal inflammation [Recovered/Resolved]
  - Aphthous ulcer [Recovered/Resolved]
  - Hypophagia [Recovered/Resolved]

NARRATIVE: CASE EVENT DATE: 20250226
